FAERS Safety Report 7327234-0 (Version None)
Quarter: 2011Q1

REPORT INFORMATION
  Report Type: 
  Country: None (occurrence: None)
  Receive Date: 20110302
  Receipt Date: 20110225
  Transmission Date: 20110831
  Serious: Yes (Hospitalization)
  Sender: FDA-Public Use
  Company Number: US-ABBOTT-11P-163-0708084-00

PATIENT
  Sex: Male
  Weight: 91.708 kg

DRUGS (4)
  1. CELEXA [Concomitant]
     Indication: BIPOLAR DISORDER
  2. MISOLINE [Concomitant]
     Indication: PRODUCT USED FOR UNKNOWN INDICATION
  3. DEPAKENE [Suspect]
     Indication: CONVULSION PROPHYLAXIS
     Dates: start: 19810101, end: 20100801
  4. SEROQUEL [Concomitant]
     Indication: BIPOLAR DISORDER

REACTIONS (4)
  - HYPERAMMONAEMIC ENCEPHALOPATHY [None]
  - CEREBRAL ATROPHY [None]
  - GENERAL PHYSICAL HEALTH DETERIORATION [None]
  - MENTAL STATUS CHANGES [None]
